FAERS Safety Report 19993404 (Version 1)
Quarter: 2021Q4

REPORT INFORMATION
  Report Type: Spontaneous
  Country: BR (occurrence: BR)
  Receive Date: 20211026
  Receipt Date: 20211026
  Transmission Date: 20220303
  Serious: Yes (Other)
  Sender: FDA-Public Use
  Company Number: BR-TEVA-2021-BR-1969689

PATIENT
  Age: 49 Year
  Sex: Female
  Weight: 48.5 kg

DRUGS (2)
  1. OXALIPLATIN [Suspect]
     Active Substance: OXALIPLATIN
     Indication: Colon cancer
     Dosage: 8 CYCLES- CYCLE 1 TO CYCLE 7: 124.355MG; CYCLE 8: 105,702MG
     Route: 042
     Dates: end: 20210811
  2. Patz [Concomitant]

REACTIONS (1)
  - Lung disorder [Not Recovered/Not Resolved]

NARRATIVE: CASE EVENT DATE: 20210101
